FAERS Safety Report 9610966 (Version 1)
Quarter: 2013Q4

REPORT INFORMATION
  Report Type: Spontaneous
  Country: US (occurrence: US)
  Receive Date: 20131009
  Receipt Date: 20131009
  Transmission Date: 20140711
  Serious: Yes (Hospitalization)
  Sender: FDA-Public Use
  Company Number: US-MPIJNJ-2013MPI000521

PATIENT
  Age: 51 Year
  Sex: Female

DRUGS (1)
  1. VELCADE [Suspect]
     Dosage: UNK
     Route: 065
     Dates: start: 201308

REACTIONS (1)
  - Wound [Unknown]
